FAERS Safety Report 19151292 (Version 1)
Quarter: 2021Q2

REPORT INFORMATION
  Report Type: Spontaneous
  Country: US (occurrence: US)
  Receive Date: 20210419
  Receipt Date: 20210419
  Transmission Date: 20210717
  Serious: No
  Sender: FDA-Public Use
  Company Number: US-SA-2021SA125297

PATIENT
  Sex: Female

DRUGS (10)
  1. TYLENOL [Concomitant]
     Active Substance: ACETAMINOPHEN
     Indication: PREMEDICATION
     Dosage: 1000 MG
     Route: 048
  2. BENADRYL [Concomitant]
     Active Substance: DIPHENHYDRAMINE HYDROCHLORIDE
     Indication: NAUSEA
  3. ZYRTEC [Suspect]
     Active Substance: CETIRIZINE HYDROCHLORIDE
     Indication: PREMEDICATION
     Dosage: UNK
     Route: 065
     Dates: start: 201909
  4. BENADRYL [Concomitant]
     Active Substance: DIPHENHYDRAMINE HYDROCHLORIDE
     Indication: THROAT IRRITATION
     Dosage: 25 MG
     Route: 048
  5. BENADRYL [Concomitant]
     Active Substance: DIPHENHYDRAMINE HYDROCHLORIDE
     Indication: MALAISE
  6. FABRAZYME [Suspect]
     Active Substance: AGALSIDASE BETA
     Dosage: 60 MG, QOW
     Route: 042
     Dates: start: 20210410
  7. BENADRYL [Concomitant]
     Active Substance: DIPHENHYDRAMINE HYDROCHLORIDE
     Indication: PREMEDICATION
     Dosage: UNK
     Route: 042
  8. FABRAZYME [Suspect]
     Active Substance: AGALSIDASE BETA
     Indication: FABRY^S DISEASE
     Dosage: 60 MG, QOW
     Route: 042
     Dates: start: 201909, end: 202005
  9. FABRAZYME [Suspect]
     Active Substance: AGALSIDASE BETA
     Dosage: 60 MG, QOW
     Route: 042
     Dates: start: 2020
  10. ALLEGRA [Concomitant]
     Active Substance: FEXOFENADINE HYDROCHLORIDE
     Indication: PREMEDICATION

REACTIONS (11)
  - Hyperhidrosis [Unknown]
  - Abdominal pain upper [Unknown]
  - Nausea [Unknown]
  - Feeling hot [Unknown]
  - Abdominal distension [Unknown]
  - Throat irritation [Recovering/Resolving]
  - Malaise [Recovering/Resolving]
  - Diarrhoea [Unknown]
  - Constipation [Unknown]
  - Blood pressure decreased [Unknown]
  - Nausea [Recovering/Resolving]
